FAERS Safety Report 11360380 (Version 1)
Quarter: 2015Q3

REPORT INFORMATION
  Report Type: Spontaneous
  Country: US (occurrence: US)
  Receive Date: 20150810
  Receipt Date: 20150810
  Transmission Date: 20151125
  Serious: No
  Sender: FDA-Public Use
  Company Number: PHEH2015US004285

PATIENT
  Sex: Male

DRUGS (1)
  1. EXTAVIA [Suspect]
     Active Substance: INTERFERON BETA-1B
     Indication: MULTIPLE SCLEROSIS
     Dosage: UNK
     Route: 058

REACTIONS (5)
  - Injection site erythema [Unknown]
  - Injection site reaction [Unknown]
  - Injection site pain [Unknown]
  - Influenza like illness [Unknown]
  - Injection site swelling [Unknown]
